FAERS Safety Report 16851378 (Version 2)
Quarter: 2019Q3

REPORT INFORMATION
  Report Type: Spontaneous
  Country: US (occurrence: US)
  Receive Date: 20190925
  Receipt Date: 20190927
  Transmission Date: 20191005
  Serious: Yes (Other)
  Sender: FDA-Public Use
  Company Number: US-PFIZER INC-2019410602

PATIENT
  Age: 67 Year
  Sex: Female

DRUGS (1)
  1. EFFEXOR XR [Suspect]
     Active Substance: VENLAFAXINE HYDROCHLORIDE
     Dosage: UNK

REACTIONS (9)
  - Suicidal ideation [Unknown]
  - Homicidal ideation [Unknown]
  - Suicide threat [Unknown]
  - Conversion disorder [Unknown]
  - Personality disorder [Unknown]
  - Attention deficit/hyperactivity disorder [Unknown]
  - Suicidal behaviour [Unknown]
  - Emotional disorder [Unknown]
  - Behaviour disorder [Unknown]

NARRATIVE: CASE EVENT DATE: 20190919
